FAERS Safety Report 9752792 (Version 1)
Quarter: 2013Q4

REPORT INFORMATION
  Report Type: Spontaneous
  Country: US (occurrence: None)
  Receive Date: 20131212
  Receipt Date: 20131212
  Transmission Date: 20140711
  Serious: Yes (Hospitalization)
  Sender: FDA-Public Use
  Company Number: None

PATIENT
  Age: 86 Year
  Sex: Male
  Weight: 65.3 kg

DRUGS (1)
  1. TRAMADOL [Suspect]
     Indication: PAIN
     Route: 048
     Dates: start: 20110829, end: 20130830

REACTIONS (5)
  - Agitation [None]
  - Screaming [None]
  - Grand mal convulsion [None]
  - Unresponsive to stimuli [None]
  - Haemorrhage intracranial [None]
